FAERS Safety Report 4642348-1 (Version None)
Quarter: 2005Q2

REPORT INFORMATION
  Report Type: 
  Country: None (occurrence: None)
  Receive Date: 20050421
  Receipt Date: 20050421
  Transmission Date: 20051028
  Serious: Yes (Other)
  Sender: FDA-Public Use
  Company Number: None

PATIENT
  Age: 59 Year
  Sex: Female

DRUGS (2)
  1. ALPRAZOLAM [Suspect]
     Indication: ANXIETY
     Dosage: ONE TABLET EVERY 8 HOURS    MANY YEARS
  2. ALPRAZOLAM [Suspect]
     Indication: PANIC ATTACK
     Dosage: ONE TABLET EVERY 8 HOURS    MANY YEARS

REACTIONS (1)
  - DRUG INEFFECTIVE [None]
